FAERS Safety Report 14022528 (Version 2)
Quarter: 2018Q3

REPORT INFORMATION
  Report Type: Spontaneous
  Country: US (occurrence: US)
  Receive Date: 20170928
  Receipt Date: 20180713
  Transmission Date: 20181010
  Serious: Yes (Other)
  Sender: FDA-Public Use
  Company Number: US-SA-2016SA174817

PATIENT
  Age: 41 Year
  Sex: Female

DRUGS (6)
  1. AUBAGIO [Suspect]
     Active Substance: TERIFLUNOMIDE
     Indication: MULTIPLE SCLEROSIS
     Dosage: 1 DF,QD
     Route: 048
     Dates: start: 20120110
  2. AMPYRA [Concomitant]
     Active Substance: DALFAMPRIDINE
     Dosage: UNK
  3. BACLOFEN. [Concomitant]
     Active Substance: BACLOFEN
     Dosage: UNK
  4. TYSABRI [Concomitant]
     Active Substance: NATALIZUMAB
     Dosage: UNK
  5. AUBAGIO [Suspect]
     Active Substance: TERIFLUNOMIDE
     Dosage: 1 DF,QD
     Route: 048
     Dates: start: 20150916
  6. ULTRAM [TRAMADOL HYDROCHLORIDE] [Concomitant]
     Dosage: UNK

REACTIONS (4)
  - Fatigue [Recovered/Resolved]
  - Pain [Recovered/Resolved]
  - Multiple sclerosis relapse [Recovered/Resolved]
  - Muscular weakness [Recovered/Resolved]

NARRATIVE: CASE EVENT DATE: 2016
